FAERS Safety Report 16135594 (Version 1)
Quarter: 2019Q1

REPORT INFORMATION
  Report Type: Spontaneous
  Country: FR (occurrence: FR)
  Receive Date: 20190329
  Receipt Date: 20190329
  Transmission Date: 20190418
  Serious: Yes (Life-Threatening)
  Sender: FDA-Public Use
  Company Number: FR-009507513-1903FRA008333

PATIENT
  Age: 86 Year
  Sex: Male
  Weight: 73 kg

DRUGS (11)
  1. EDUCTYL [Concomitant]
     Active Substance: POTASSIUM BITARTRATE\SODIUM BICARBONATE
     Route: 065
  2. MOVICOL [Concomitant]
     Active Substance: POLYETHYLENE GLYCOL 3350\POTASSIUM CHLORIDE\SODIUM BICARBONATE\SODIUM CHLORIDE
     Dosage: IN THE MORNING
     Route: 048
  3. CLOZAPINE. [Suspect]
     Active Substance: CLOZAPINE
     Indication: AGGRESSION
     Dosage: SEE COMMENT
     Route: 048
     Dates: start: 20181127, end: 20190122
  4. ELIQUIS [Concomitant]
     Active Substance: APIXABAN
     Dosage: 2 DOSAGE FORM, QD
     Route: 048
  5. MIRTAZAPINE. [Suspect]
     Active Substance: MIRTAZAPINE
     Indication: PRODUCT USED FOR UNKNOWN INDICATION
     Dosage: IN THE EVENING
     Route: 048
  6. DULCILARMES [Concomitant]
     Dosage: 3 GTT DROPS, QD
     Route: 047
  7. NORMACOL [Concomitant]
     Active Substance: HERBALS\KARAYA GUM
     Route: 048
  8. LOXAPAC (LOXAPINE SUCCINATE) [Suspect]
     Active Substance: LOXAPINE SUCCINATE
     Indication: AGGRESSION
     Dosage: BEFORE CARE
     Route: 048
  9. XATRAL [Concomitant]
     Active Substance: ALFUZOSIN
     Dosage: 4 DOSAGE FORM, QD
     Route: 048
  10. SERESTA [Suspect]
     Active Substance: OXAZEPAM
     Indication: PRODUCT USED FOR UNKNOWN INDICATION
     Dosage: AND IF AGITATION
     Route: 048
  11. IMOVANE [Concomitant]
     Active Substance: ZOPICLONE
     Dosage: IN THE EVENING
     Route: 048

REACTIONS (3)
  - Circulatory collapse [Recovered/Resolved]
  - Malaise [Recovered/Resolved]
  - Syncope [Recovered/Resolved]

NARRATIVE: CASE EVENT DATE: 20190122
